FAERS Safety Report 8909786 (Version 2)
Quarter: 2012Q4

REPORT INFORMATION
  Report Type: 
  Country: BR (occurrence: BR)
  Receive Date: 20121115
  Receipt Date: 20121220
  Transmission Date: 20130627
  Serious: No
  Sender: FDA-Public Use
  Company Number: BR-PFIZER INC-2012280698

PATIENT
  Sex: Male
  Weight: 80 kg

DRUGS (1)
  1. CAVERJECT [Suspect]
     Indication: ERECTILE DYSFUNCTION
     Dosage: injection of 20 ug, unspecified frequency
     Dates: start: 2010

REACTIONS (2)
  - Incorrect storage of drug [Unknown]
  - Drug ineffective [Unknown]
